FAERS Safety Report 11813486 (Version 2)
Quarter: 2015Q4

REPORT INFORMATION
  Report Type: Report from Study
  Country: NL (occurrence: NL)
  Receive Date: 20151209
  Receipt Date: 20151229
  Transmission Date: 20160305
  Serious: Yes (Hospitalization)
  Sender: FDA-Public Use
  Company Number: PHHY2015NL158619

PATIENT
  Age: 69 Year
  Sex: Male

DRUGS (1)
  1. SANDOSTATIN LAR DEPOT [Suspect]
     Active Substance: OCTREOTIDE ACETATE
     Indication: NEUROENDOCRINE TUMOUR
     Dosage: 20 MG/2ML, QMO (EVERY 4 WEEKS)
     Route: 030

REACTIONS (4)
  - Pneumothorax [Unknown]
  - Fall [Unknown]
  - Rib fracture [Unknown]
  - Dizziness [Unknown]

NARRATIVE: CASE EVENT DATE: 20151120
